FAERS Safety Report 11241844 (Version 3)
Quarter: 2015Q3

REPORT INFORMATION
  Report Type: Spontaneous
  Country: US (occurrence: US)
  Receive Date: 20150706
  Receipt Date: 20150724
  Transmission Date: 20151125
  Serious: Yes (Hospitalization)
  Sender: FDA-Public Use
  Company Number: US-ACTELION-A-US2014-105432

PATIENT
  Age: 56 Year
  Sex: Male

DRUGS (4)
  1. ADCIRCA [Concomitant]
     Active Substance: TADALAFIL
  2. VELETRI [Suspect]
     Active Substance: EPOPROSTENOL
     Dosage: 22 NG/KG, PER MIN
     Route: 042
     Dates: start: 20140904
  3. VELETRI [Suspect]
     Active Substance: EPOPROSTENOL
     Dosage: 10 NG/KG, PER MIN
     Route: 042
     Dates: start: 20150223
  4. VELETRI [Suspect]
     Active Substance: EPOPROSTENOL
     Indication: PULMONARY ARTERIAL HYPERTENSION
     Dosage: 14 NG/KG, PER MIN
     Route: 042
     Dates: start: 20140905

REACTIONS (23)
  - Decreased appetite [Unknown]
  - Vomiting [Unknown]
  - Asthenia [Unknown]
  - Pain in extremity [Unknown]
  - Oedema peripheral [Unknown]
  - Insomnia [Unknown]
  - Nervousness [Unknown]
  - Dyspnoea [Unknown]
  - Oedema [Unknown]
  - Condition aggravated [Unknown]
  - Pump reservoir issue [Unknown]
  - Hyperhidrosis [Unknown]
  - Nausea [Unknown]
  - Arthralgia [Unknown]
  - Feeling hot [Unknown]
  - Cardiac operation [Unknown]
  - Diarrhoea [Unknown]
  - Weight increased [Unknown]
  - Heart rate increased [Unknown]
  - Device leakage [Unknown]
  - Respiratory rate increased [Unknown]
  - Headache [Unknown]
  - Pain in jaw [Unknown]
